FAERS Safety Report 25154267 (Version 1)
Quarter: 2025Q2

REPORT INFORMATION
  Report Type: Other
  Country: GB (occurrence: GB)
  Receive Date: 20250403
  Receipt Date: 20250403
  Transmission Date: 20250717
  Serious: Yes (Other)
  Sender: MACLEODS
  Company Number: GB-MHRA-TPP5330443C2358900YC1742463983287

PATIENT

DRUGS (17)
  1. CLOPIDOGREL [Suspect]
     Active Substance: CLOPIDOGREL BISULFATE
     Indication: Product used for unknown indication
     Dosage: TAKE ONE ONCE DAILY
     Route: 065
  2. AMDINOCILLIN PIVOXIL [Concomitant]
     Active Substance: AMDINOCILLIN PIVOXIL
     Indication: Urinary tract infection
     Route: 065
     Dates: start: 20241223, end: 20241226
  3. AMITRIPTYLINE HYDROCHLORIDE [Concomitant]
     Active Substance: AMITRIPTYLINE HYDROCHLORIDE
     Indication: Product used for unknown indication
     Dosage: TAKE ONE AT NIGHT AND IF NEEDED ONE IN THE MARN...
     Route: 065
     Dates: start: 20250203, end: 20250303
  4. CLOTRIMAZOLE [Concomitant]
     Active Substance: CLOTRIMAZOLE
     Indication: Product used for unknown indication
     Route: 065
     Dates: start: 20250203, end: 20250303
  5. METHYLPREDNISOLONE [Concomitant]
     Active Substance: METHYLPREDNISOLONE
     Indication: Product used for unknown indication
     Route: 065
     Dates: start: 20250226, end: 20250227
  6. LIDOCAINE [Concomitant]
     Active Substance: LIDOCAINE
     Indication: Product used for unknown indication
     Route: 065
     Dates: start: 20250226, end: 20250227
  7. BETAMETHASONE VALERATE [Concomitant]
     Active Substance: BETAMETHASONE VALERATE
     Indication: Ill-defined disorder
     Route: 065
     Dates: start: 20180618
  8. HUMULIN L [Concomitant]
     Active Substance: INSULIN HUMAN
     Indication: Ill-defined disorder
     Route: 065
     Dates: start: 20210114
  9. BUDESONIDE\FORMOTEROL [Concomitant]
     Active Substance: BUDESONIDE\FORMOTEROL
     Indication: Ill-defined disorder
     Route: 065
     Dates: start: 20220223
  10. ALBUTEROL [Concomitant]
     Active Substance: ALBUTEROL
     Indication: Ill-defined disorder
     Route: 065
     Dates: start: 20230105
  11. ESTRIOL [Concomitant]
     Active Substance: ESTRIOL
     Indication: Ill-defined disorder
     Dosage: APPLY VAGINALLY TWICE A WEEK.
     Route: 067
     Dates: start: 20230829
  12. BECONASE AQ [Concomitant]
     Active Substance: BECLOMETHASONE DIPROPIONATE MONOHYDRATE
     Indication: Ill-defined disorder
     Dosage: 2 PUFFS INTO EACH NOSTRIL TWICE A DAY.
     Route: 065
     Dates: start: 20240202
  13. SPIRIVA [Concomitant]
     Active Substance: TIOTROPIUM BROMIDE MONOHYDRATE
     Indication: Ill-defined disorder
     Dosage: TWO PUFFS ONCE DAILY
     Route: 065
     Dates: start: 20240212
  14. DOXAZOSIN [Concomitant]
     Active Substance: DOXAZOSIN MESYLATE
     Indication: Ill-defined disorder
     Dosage: TAKE ONE DAILY TO LOWER BLOOD PRESSURE
     Route: 065
     Dates: start: 20240716
  15. EZETIMIBE [Concomitant]
     Active Substance: EZETIMIBE
     Indication: Ill-defined disorder
     Dosage: TAKE ONE DAILY TO HELP LOWER YOUR CHOLESTEROL
     Route: 065
     Dates: start: 20240723, end: 20250307
  16. LEVOTHYROXINE [Concomitant]
     Active Substance: LEVOTHYROXINE
     Indication: Hypothyroidism
     Dosage: TAKE ONE EACH MORNING FOR HYPOTHYROIDISM
     Route: 065
     Dates: start: 20241011
  17. LANSOPRAZOLE [Concomitant]
     Active Substance: LANSOPRAZOLE
     Indication: Ill-defined disorder
     Dosage: TAKE ONE ONCE DAILY
     Route: 065
     Dates: start: 20241202

REACTIONS (2)
  - Contusion [Recovered/Resolved]
  - Haemorrhage [Unknown]
